FAERS Safety Report 19464204 (Version 2)
Quarter: 2021Q2

REPORT INFORMATION
  Report Type: Report from Study
  Country: None (occurrence: CA)
  Receive Date: 20210625
  Receipt Date: 20210625
  Transmission Date: 20210717
  Serious: Yes (Other)
  Sender: FDA-Public Use
  Company Number: CA-ABBVIE-21K-028-3964001-00

PATIENT
  Sex: Female

DRUGS (1)
  1. RINVOQ [Suspect]
     Active Substance: UPADACITINIB
     Indication: RHEUMATOID ARTHRITIS
     Route: 048
     Dates: start: 20200606

REACTIONS (10)
  - Paraesthesia [Unknown]
  - Arthritis [Unknown]
  - Aspartate aminotransferase increased [Unknown]
  - Liver injury [Unknown]
  - Alanine aminotransferase increased [Unknown]
  - Arthropathy [Unknown]
  - Alopecia [Unknown]
  - Cardiovascular disorder [Unknown]
  - Thoracic outlet syndrome [Unknown]
  - Sciatica [Unknown]
